FAERS Safety Report 5472698-0 (Version None)
Quarter: 2007Q4

REPORT INFORMATION
  Report Type: 
  Country: None (occurrence: None)
  Receive Date: 20071001
  Receipt Date: 20070713
  Transmission Date: 20080405
  Serious: No
  Sender: FDA-Public Use
  Company Number: US-ASTRAZENECA-2006UW19828

PATIENT
  Sex: Female
  Weight: 83.9 kg

DRUGS (2)
  1. ARIMIDEX [Suspect]
     Indication: BREAST CANCER FEMALE
     Route: 048
     Dates: start: 20030101
  2. ACTONEL [Concomitant]

REACTIONS (4)
  - ATROPHIC VULVOVAGINITIS [None]
  - CERVICAL DYSPLASIA [None]
  - NODULE [None]
  - VULVOVAGINAL DRYNESS [None]
